FAERS Safety Report 9719969 (Version 1)
Quarter: 2013Q4

REPORT INFORMATION
  Report Type: Spontaneous
  Country: IL (occurrence: IL)
  Receive Date: 20131128
  Receipt Date: 20131128
  Transmission Date: 20140711
  Serious: Yes (Hospitalization)
  Sender: FDA-Public Use
  Company Number: IL-JNJFOC-20131115444

PATIENT
  Age: 79 Year
  Sex: Female

DRUGS (15)
  1. XARELTO [Suspect]
     Indication: CEREBROVASCULAR ACCIDENT PROPHYLAXIS
     Route: 048
     Dates: start: 201209, end: 201310
  2. XARELTO [Suspect]
     Indication: ATRIAL FIBRILLATION
     Route: 048
     Dates: start: 201209, end: 201310
  3. FAMOTIDINE [Concomitant]
     Route: 065
  4. FOLIC ACID [Concomitant]
     Route: 065
  5. ATORVASTATIN [Concomitant]
     Route: 065
  6. FLIXOTIDE [Concomitant]
     Route: 065
  7. VESICARE [Concomitant]
     Route: 065
  8. IPRATROPIUM BROMIDE [Concomitant]
     Route: 065
  9. ZOLPIDEM TARTRATE [Concomitant]
     Route: 065
  10. ENALAPRIL [Concomitant]
     Route: 065
  11. VENTOLIN [Concomitant]
     Route: 065
  12. BEZAFIBRATE [Concomitant]
     Route: 065
  13. BISOPROLOL [Concomitant]
     Route: 065
  14. VERAPAMIL [Concomitant]
     Route: 065
  15. LORIVAN [Concomitant]
     Route: 065

REACTIONS (1)
  - Deep vein thrombosis [Recovered/Resolved]
